FAERS Safety Report 7071056-5 (Version None)
Quarter: 2010Q4

REPORT INFORMATION
  Report Type: 
  Country: None (occurrence: None)
  Receive Date: 20101029
  Receipt Date: 20101022
  Transmission Date: 20110411
  Serious: No
  Sender: FDA-Public Use
  Company Number: US-PFIZER INC-2010135552

PATIENT
  Sex: Male
  Weight: 102.4 kg

DRUGS (2)
  1. LIPITOR [Suspect]
     Indication: BLOOD CHOLESTEROL INCREASED
     Dosage: 20 MG, DAILY
     Route: 048
  2. ACTOS [Concomitant]
     Dosage: UNK

REACTIONS (2)
  - PRODUCT ODOUR ABNORMAL [None]
  - PRODUCT TASTE ABNORMAL [None]
